FAERS Safety Report 9413159 (Version 1)
Quarter: 2013Q3

REPORT INFORMATION
  Report Type: Spontaneous
  Country: US (occurrence: US)
  Receive Date: 20130722
  Receipt Date: 20130722
  Transmission Date: 20140515
  Serious: No
  Sender: FDA-Public Use
  Company Number: US-MYLANLABS-2013S1013774

PATIENT
  Age: 22 Year
  Sex: Male

DRUGS (2)
  1. DOXYCYCLINE [Suspect]
  2. MINOCYCLINE [Suspect]

REACTIONS (1)
  - Nausea [Unknown]
